FAERS Safety Report 4543811-4 (Version None)
Quarter: 2005Q1

REPORT INFORMATION
  Report Type: 
  Country: None (occurrence: None)
  Receive Date: 20050103
  Receipt Date: 20041023
  Transmission Date: 20050727
  Serious: Yes (Hospitalization)
  Sender: FDA-Public Use
  Company Number: GXKR2003US00545

PATIENT
  Age: 18 Month
  Sex: Male
  Weight: 12 kg

DRUGS (1)
  1. IBUPROFEN [Suspect]
     Dosage: ORAL
     Route: 048

REACTIONS (5)
  - ACCIDENTAL OVERDOSE [None]
  - APNOEA [None]
  - GRAND MAL CONVULSION [None]
  - LETHARGY [None]
  - METABOLIC ACIDOSIS [None]
